FAERS Safety Report 4340176-8 (Version None)
Quarter: 2004Q1

REPORT INFORMATION
  Report Type: 
  Country: None (occurrence: None)
  Receive Date: 20040329
  Receipt Date: 20040202
  Transmission Date: 20041129
  Serious: No
  Sender: FDA-Public Use
  Company Number: 04P-163-0249070-00

PATIENT
  Age: 74 Year
  Sex: Male
  Weight: 76.2043 kg

DRUGS (9)
  1. HUMIRA [Suspect]
     Indication: RHEUMATOID ARTHRITIS
     Dosage: 40 MG, 1 IN 2 WK, SUBCUTANEOUS
     Route: 058
     Dates: start: 20040119
  2. PREDNISONE [Concomitant]
  3. METHOTREXATE [Concomitant]
  4. COUMADIN [Concomitant]
  5. ATENOLOL [Concomitant]
  6. DYAZIDE [Concomitant]
  7. FOLIC ACID [Concomitant]
  8. ATORVASTATIN [Concomitant]
  9. MULTI-VITAMINS [Concomitant]

REACTIONS (2)
  - ACCIDENTAL NEEDLE STICK [None]
  - INJECTION SITE HAEMORRHAGE [None]
